FAERS Safety Report 6853606-4 (Version None)
Quarter: 2010Q3

REPORT INFORMATION
  Report Type: 
  Country: None (occurrence: None)
  Receive Date: 20100717
  Receipt Date: 20071211
  Transmission Date: 20110219
  Serious: No
  Sender: FDA-Public Use
  Company Number: US-PFIZER INC-2007106138

PATIENT
  Sex: Female
  Weight: 76.2 kg

DRUGS (9)
  1. CHANTIX [Suspect]
     Indication: SMOKING CESSATION THERAPY
     Dates: start: 20071001
  2. WARFARIN SODIUM [Concomitant]
  3. INSULIN [Concomitant]
  4. TRICOR [Concomitant]
  5. PROMETHAZINE [Concomitant]
  6. FLEXERIL [Concomitant]
  7. CLARITIN [Concomitant]
  8. COREG [Concomitant]
  9. HYDROCHLOROTHIAZIDE [Concomitant]

REACTIONS (1)
  - DEPRESSION [None]
